FAERS Safety Report 8200692-5 (Version None)
Quarter: 2012Q1

REPORT INFORMATION
  Report Type: 
  Country: None (occurrence: None)
  Receive Date: 20120306
  Receipt Date: 20120224
  Transmission Date: 20120608
  Serious: Yes (Death, Hospitalization)
  Sender: FDA-Public Use
  Company Number: 2012000031

PATIENT
  Age: 78 Year
  Sex: Male

DRUGS (6)
  1. FLUTICASONE PROPIONATE [Concomitant]
  2. ACEON [Suspect]
     Indication: BLOOD PRESSURE INCREASED
     Dosage: 5 MG, QD, ORAL; 5, QD, ORAL
     Route: 048
     Dates: end: 20110128
  3. ACEON [Suspect]
     Indication: BLOOD PRESSURE INCREASED
     Dosage: 5 MG, QD, ORAL; 5, QD, ORAL
     Route: 048
     Dates: start: 20110216, end: 20110224
  4. SPIRIVA [Concomitant]
  5. VENTOLIN [Concomitant]
  6. PARACETAMOL/CODEINEFOSFAAT (CODEINE PHOSPHATE PARACETAMOL) [Concomitant]

REACTIONS (14)
  - HYPERSENSITIVITY [None]
  - MENINGIOMA [None]
  - GENERAL PHYSICAL HEALTH DETERIORATION [None]
  - CARDIAC ARREST [None]
  - CEREBRAL VENTRICLE DILATATION [None]
  - CARDIOMEGALY [None]
  - TREATMENT FAILURE [None]
  - CHRONIC OBSTRUCTIVE PULMONARY DISEASE [None]
  - CELLULITIS [None]
  - ANGIOEDEMA [None]
  - ARTHRITIS [None]
  - CORONARY ARTERY DISEASE [None]
  - LOWER RESPIRATORY TRACT INFECTION [None]
  - ANAPHYLACTIC REACTION [None]
